FAERS Safety Report 8170071-8 (Version None)
Quarter: 2012Q1

REPORT INFORMATION
  Report Type: 
  Country: None (occurrence: None)
  Receive Date: 20120106
  Receipt Date: 20110720
  Transmission Date: 20120608
  Serious: Yes (Other)
  Sender: FDA-Public Use
  Company Number: 20110541

PATIENT
  Age: 68 Year
  Sex: Male

DRUGS (1)
  1. VENOFER [Suspect]
     Indication: GASTROINTESTINAL HAEMORRHAGE
     Dosage: INTRAVENOUS
     Route: 042

REACTIONS (1)
  - EXTRAVASATION [None]
